FAERS Safety Report 12843748 (Version 2)
Quarter: 2016Q4

REPORT INFORMATION
  Report Type: Other
  Country: FR (occurrence: FR)
  Receive Date: 20161013
  Receipt Date: 20161227
  Transmission Date: 20170207
  Serious: Yes (Death, Other)
  Sender: FDA-Public Use
  Company Number: FR-VALIDUS PHARMACEUTICALS LLC-FR-2016VAL002824

PATIENT
  Age: 95 Year
  Sex: Male

DRUGS (15)
  1. FUROSEMIDE. [Suspect]
     Active Substance: FUROSEMIDE
     Indication: HYPERTENSION
     Dosage: 1 DF, QD
     Route: 048
  2. DIFFU K [Suspect]
     Active Substance: POTASSIUM CHLORIDE
     Indication: PRODUCT USED FOR UNKNOWN INDICATION
     Dosage: 1 DF, QD
     Route: 048
  3. SPECIAFOLDINE [Suspect]
     Active Substance: FOLIC ACID
     Indication: PRODUCT USED FOR UNKNOWN INDICATION
     Dosage: 1 DF, QD
     Route: 048
  4. ESOMEPRAZOLE [Suspect]
     Active Substance: ESOMEPRAZOLE
     Indication: PRODUCT USED FOR UNKNOWN INDICATION
     Dosage: 1 DF, QD
     Route: 048
  5. JOSIR LP [Suspect]
     Active Substance: TAMSULOSIN
     Indication: PRODUCT USED FOR UNKNOWN INDICATION
     Dosage: 0.4 MG, QD
     Route: 048
  6. IBUPROFEN. [Suspect]
     Active Substance: IBUPROFEN
     Indication: PAIN
     Dosage: UNK, QD
     Route: 048
     Dates: end: 20160906
  7. BACTRIM [Suspect]
     Active Substance: SULFAMETHOXAZOLE\TRIMETHOPRIM
     Indication: URINARY TRACT INFECTION
     Dosage: 2 DF, QD
     Route: 048
     Dates: start: 20160817, end: 20160906
  8. EUPRESSYL [Suspect]
     Active Substance: URAPIDIL
     Indication: HYPERTENSION
     Dosage: 30 MG, BID
     Route: 048
  9. VENTOLIN [Suspect]
     Active Substance: ALBUTEROL SULFATE
     Indication: CHRONIC OBSTRUCTIVE PULMONARY DISEASE
     Dosage: 3 DF, QD, INHALATIONAL
  10. KARDEGIC [Suspect]
     Active Substance: ASPIRIN LYSINE
     Indication: PRODUCT USED FOR UNKNOWN INDICATION
     Dosage: 75 MG, QD
     Route: 048
  11. MOVICOL [Suspect]
     Active Substance: POLYETHYLENE GLYCOL 3350\POTASSIUM CHLORIDE\SODIUM BICARBONATE\SODIUM CHLORIDE
     Indication: PRODUCT USED FOR UNKNOWN INDICATION
     Dosage: 1 DF, QD
     Route: 048
  12. PARACETAMOL [Suspect]
     Active Substance: ACETAMINOPHEN
     Indication: PRODUCT USED FOR UNKNOWN INDICATION
     Dosage: 2 DF, TID
     Route: 048
  13. AVODART [Suspect]
     Active Substance: DUTASTERIDE
     Indication: PRODUCT USED FOR UNKNOWN INDICATION
     Dosage: 0.5 MG, QD
     Route: 048
  14. ATROVENT [Suspect]
     Active Substance: IPRATROPIUM BROMIDE
     Indication: CHRONIC OBSTRUCTIVE PULMONARY DISEASE
     Dosage: 2 DF, QD, INHALATIONAL
  15. TARDYFERON [Suspect]
     Active Substance: FERROUS SULFATE
     Indication: PRODUCT USED FOR UNKNOWN INDICATION
     Dosage: 1 DF, BID
     Route: 048

REACTIONS (5)
  - Hypoglycaemic coma [Recovered/Resolved]
  - Myocardial infarction [Fatal]
  - Epilepsy [Recovered/Resolved]
  - Hyperkalaemia [Recovered/Resolved]
  - Acute kidney injury [Recovered/Resolved]

NARRATIVE: CASE EVENT DATE: 20160906
